FAERS Safety Report 13185533 (Version 4)
Quarter: 2017Q1

REPORT INFORMATION
  Report Type: Report from Study
  Country: US (occurrence: MX)
  Receive Date: 20170203
  Receipt Date: 20170313
  Transmission Date: 20170428
  Serious: Yes (Other)
  Sender: FDA-Public Use
  Company Number: US-SUNOVION-2017SUN000445

PATIENT
  Age: 75 Year
  Sex: Male
  Weight: 68 kg

DRUGS (23)
  1. PREGABALIN. [Concomitant]
     Active Substance: PREGABALIN
     Dosage: UNK
     Dates: start: 2000
  2. INDACATEROL [Suspect]
     Active Substance: INDACATEROL
     Indication: EMPHYSEMA
     Dosage: 1 DF (150 UG), BID
     Route: 055
     Dates: start: 201501
  3. INDACATEROL [Suspect]
     Active Substance: INDACATEROL
     Indication: CHRONIC OBSTRUCTIVE PULMONARY DISEASE
  4. ANGIOTROFIN [Concomitant]
     Active Substance: DILTIAZEM HYDROCHLORIDE
     Dosage: UNK
  5. SPIRIVA [Concomitant]
     Active Substance: TIOTROPIUM BROMIDE MONOHYDRATE
     Dosage: UNK
     Dates: start: 201512
  6. FLUOXETINE [Concomitant]
     Active Substance: FLUOXETINE HYDROCHLORIDE
     Dosage: UNK
  7. INDACATEROL [Suspect]
     Active Substance: INDACATEROL
     Indication: NERVOUS SYSTEM DISORDER
     Dosage: 1 DF (150 UG), QD
     Route: 055
     Dates: start: 201512, end: 201608
  8. CLONAZEPAM. [Suspect]
     Active Substance: CLONAZEPAM
     Indication: SLEEP DISORDER
     Dosage: 0.5 DF (2MG TABLET), QD (STARTED 20 YEARS AGO)
     Route: 048
  9. OMEPRAZOLE. [Concomitant]
     Active Substance: OMEPRAZOLE
     Dosage: UNK
     Dates: start: 2000
  10. CINITAPRIDE [Concomitant]
     Dosage: UNK
  11. ALBUTEROL. [Concomitant]
     Active Substance: ALBUTEROL
     Dosage: UNK
  12. DILTIAZEM. [Concomitant]
     Active Substance: DILTIAZEM
     Dosage: UNK
     Dates: start: 2000
  13. ASPIRIN PROTECT [Concomitant]
     Active Substance: ASPIRIN
     Dosage: UNK
  14. COMBIGAN D [Concomitant]
     Dosage: UNK
  15. BISOPROLOL [Concomitant]
     Active Substance: BISOPROLOL
     Dosage: 5 MG, UNK
     Dates: start: 201601
  16. LOSARTAN. [Concomitant]
     Active Substance: LOSARTAN
     Dosage: 50 MG, UNK
  17. DIURMESSEL [Concomitant]
     Dosage: UNK
  18. ISOSORBIDE DINITRATE. [Concomitant]
     Active Substance: ISOSORBIDE DINITRATE
     Dosage: UNK
     Dates: start: 2000
  19. ATORVASTATIN [Concomitant]
     Active Substance: ATORVASTATIN
     Dosage: UNK
     Dates: start: 2000
  20. CLONAZEPAM. [Suspect]
     Active Substance: CLONAZEPAM
     Indication: INSOMNIA
  21. OXYGEN. [Concomitant]
     Active Substance: OXYGEN
     Dosage: UNK
  22. DICLOFENAC SODIUM. [Concomitant]
     Active Substance: DICLOFENAC SODIUM
     Dosage: UNK
  23. PARACETAMOL [Concomitant]
     Active Substance: ACETAMINOPHEN
     Dosage: UNK

REACTIONS (36)
  - Hypertonia [Unknown]
  - Paraesthesia [Unknown]
  - Memory impairment [Unknown]
  - Tension [Unknown]
  - Injury [Unknown]
  - Fatigue [Unknown]
  - Gait disturbance [Unknown]
  - Dyspnoea [Unknown]
  - Back pain [Not Recovered/Not Resolved]
  - Pain in extremity [Unknown]
  - Asphyxia [Unknown]
  - Hypersomnia [Unknown]
  - Inappropriate schedule of drug administration [Recovered/Resolved]
  - Drug dependence [Unknown]
  - Inflammation [Unknown]
  - Depressed mood [Unknown]
  - Anxiety [Unknown]
  - Malaise [Unknown]
  - Back injury [Not Recovered/Not Resolved]
  - Weight decreased [Unknown]
  - Micturition urgency [Not Recovered/Not Resolved]
  - Fall [Unknown]
  - Feeling abnormal [Unknown]
  - Rhinorrhoea [Unknown]
  - Nasopharyngitis [Unknown]
  - Visual impairment [Unknown]
  - Condition aggravated [Unknown]
  - Penile pain [Unknown]
  - Thrombosis [Not Recovered/Not Resolved]
  - Asthenia [Unknown]
  - Drug prescribing error [Not Recovered/Not Resolved]
  - Infarction [Recovered/Resolved]
  - Penile haemorrhage [Unknown]
  - Contusion [Unknown]
  - Dizziness [Unknown]
  - Product use issue [Unknown]

NARRATIVE: CASE EVENT DATE: 201501
